FAERS Safety Report 15735760 (Version 3)
Quarter: 2019Q3

REPORT INFORMATION
  Report Type: Spontaneous
  Country: CA (occurrence: CA)
  Receive Date: 20181218
  Receipt Date: 20190829
  Transmission Date: 20191004
  Serious: Yes (Hospitalization)
  Sender: FDA-Public Use
  Company Number: CA-ELI_LILLY_AND_COMPANY-CA201807011181

PATIENT
  Age: 37 Year
  Sex: Male

DRUGS (7)
  1. ZYPREXA [Suspect]
     Active Substance: OLANZAPINE
     Dosage: 15 MG, UNKNOWN
     Route: 065
  2. INVEGA SUSTENNA [Suspect]
     Active Substance: PALIPERIDONE PALMITATE
     Indication: PRODUCT USED FOR UNKNOWN INDICATION
     Dosage: UUNK, UNKNOWN
     Route: 065
     Dates: start: 20160501, end: 20170501
  3. COGENTIN [Suspect]
     Active Substance: BENZTROPINE MESYLATE
     Indication: PRODUCT USED FOR UNKNOWN INDICATION
     Dosage: UNK UNK, UNKNOWN
     Route: 065
     Dates: start: 20160101, end: 20170101
  4. ZYPREXA [Suspect]
     Active Substance: OLANZAPINE
     Indication: PRODUCT USED FOR UNKNOWN INDICATION
     Dosage: 5 MG, UNKNOWN
     Route: 048
     Dates: end: 2015
  5. ABILIFY [Suspect]
     Active Substance: ARIPIPRAZOLE
     Dosage: 300 MG, UNKNOWN
     Route: 065
     Dates: start: 20180501
  6. ZYPREXA [Suspect]
     Active Substance: OLANZAPINE
     Dosage: 10 MG, UNKNOWN
     Route: 048
     Dates: start: 2015
  7. ABILIFY [Suspect]
     Active Substance: ARIPIPRAZOLE
     Indication: PRODUCT USED FOR UNKNOWN INDICATION
     Dosage: 400 MG, MONTHLY (1/M)
     Route: 065
     Dates: start: 201803

REACTIONS (9)
  - Bruxism [Recovering/Resolving]
  - Schizophrenia [Recovering/Resolving]
  - Blood prolactin increased [Not Recovered/Not Resolved]
  - Muscular weakness [Unknown]
  - Hallucination, auditory [Not Recovered/Not Resolved]
  - Akathisia [Recovered/Resolved]
  - Tendonitis [Recovering/Resolving]
  - Hypoglycaemia [Not Recovered/Not Resolved]
  - Fatigue [Not Recovered/Not Resolved]
